FAERS Safety Report 10462967 (Version 1)
Quarter: 2014Q3

REPORT INFORMATION
  Report Type: Spontaneous
  Country: US (occurrence: US)
  Receive Date: 20140918
  Receipt Date: 20140918
  Transmission Date: 20150326
  Serious: Yes (Life-Threatening, Other)
  Sender: FDA-Public Use
  Company Number: PHHY2014US120283

PATIENT
  Age: 27 Year
  Sex: Female

DRUGS (3)
  1. PHENYTOIN. [Interacting]
     Active Substance: PHENYTOIN
     Indication: CONVULSION
  2. CIPROFLOXACIN. [Suspect]
     Active Substance: CIPROFLOXACIN
     Indication: URINARY TRACT INFECTION
  3. METHADONE [Interacting]
     Active Substance: METHADONE HYDROCHLORIDE
     Indication: NEURALGIA
     Dosage: 10 MG, TID

REACTIONS (4)
  - Drug interaction [Unknown]
  - Overdose [Unknown]
  - Drug level decreased [Unknown]
  - Drug level increased [Unknown]
